FAERS Safety Report 5049699-X (Version None)
Quarter: 2006Q3

REPORT INFORMATION
  Report Type: 
  Country: None (occurrence: None)
  Receive Date: 20060712
  Receipt Date: 20060531
  Transmission Date: 20061208
  Serious: Yes (Hospitalization)
  Sender: FDA-Public Use
  Company Number: BE-BOEHRINGER INGELHEIM PHARMACEUTICALS, INC.-2006-BL-00146BL

PATIENT
  Sex: Male
  Weight: 91 kg

DRUGS (3)
  1. MIRAPEXIN [Suspect]
     Indication: PARKINSON'S DISEASE
     Route: 048
  2. ALPRAZOLAM [Concomitant]
     Indication: ANXIETY
     Route: 048
  3. LOGIMAT [Concomitant]
     Indication: HYPERTENSION
     Route: 048

REACTIONS (2)
  - EYE ABSCESS [None]
  - OCULAR HYPERAEMIA [None]
